FAERS Safety Report 16852768 (Version 1)
Quarter: 2019Q3

REPORT INFORMATION
  Report Type: Spontaneous
  Country: CA (occurrence: CA)
  Receive Date: 20190925
  Receipt Date: 20190925
  Transmission Date: 20191005
  Serious: Yes (Life-Threatening, Hospitalization, Other)
  Sender: FDA-Public Use
  Company Number: CA-TEVA-2019-CA-1113455

PATIENT
  Age: 69 Year
  Sex: Male
  Weight: 105 kg

DRUGS (9)
  1. NAPROXEN. [Concomitant]
     Active Substance: NAPROXEN
  2. LEUPROLIDE [Concomitant]
     Active Substance: LEUPROLIDE
  3. DILTIAZEM. [Concomitant]
     Active Substance: DILTIAZEM
  4. TRAMADOL /ACETAMINOPHEN [Concomitant]
  5. VENLAFAXINE [Suspect]
     Active Substance: VENLAFAXINE HYDROCHLORIDE
     Indication: HOT FLUSH
     Dosage: 37.5 MILLIGRAM DAILY;
     Route: 048
  6. [ABIRATERONE ACETATE] [Interacting]
     Active Substance: ABIRATERONE ACETATE
  7. KETOROLAC [Concomitant]
     Active Substance: KETOROLAC TROMETHAMINE
  8. CANDESARTAN. [Concomitant]
     Active Substance: CANDESARTAN
  9. PREDNISONE. [Concomitant]
     Active Substance: PREDNISONE

REACTIONS (2)
  - Thrombocytopenia [Recovering/Resolving]
  - Drug interaction [Recovering/Resolving]
